FAERS Safety Report 17605088 (Version 1)
Quarter: 2020Q1

REPORT INFORMATION
  Report Type: Spontaneous
  Country: US (occurrence: US)
  Receive Date: 20200331
  Receipt Date: 20200331
  Transmission Date: 20200409
  Serious: Yes (Death, Life-Threatening, Hospitalization)
  Sender: FDA-Public Use
  Company Number: US-TEVA-2020-US-1213950

PATIENT
  Age: 71 Year
  Sex: Female

DRUGS (1)
  1. ALLOPURINOL. [Suspect]
     Active Substance: ALLOPURINOL
     Indication: GOUT
     Route: 065

REACTIONS (12)
  - Gastrointestinal haemorrhage [Not Recovered/Not Resolved]
  - Acute kidney injury [Unknown]
  - Anaemia [Unknown]
  - Respiratory failure [Unknown]
  - Ileus [Unknown]
  - Septic shock [Fatal]
  - Stevens-Johnson syndrome [Unknown]
  - Toxic epidermal necrolysis [Unknown]
  - Diarrhoea haemorrhagic [Unknown]
  - Gastritis [Unknown]
  - Ileal ulcer [Unknown]
  - Large intestinal ulcer [Unknown]
